FAERS Safety Report 21812203 (Version 1)
Quarter: 2023Q1

REPORT INFORMATION
  Report Type: Report from Study
  Country: US (occurrence: US)
  Receive Date: 20230103
  Receipt Date: 20230103
  Transmission Date: 20230418
  Serious: No
  Sender: FDA-Public Use
  Company Number: US-ABBVIE-4222108

PATIENT
  Sex: Female

DRUGS (1)
  1. RINVOQ [Suspect]
     Active Substance: UPADACITINIB
     Indication: Rheumatoid arthritis
     Route: 048
     Dates: start: 20221104

REACTIONS (4)
  - Vomiting [Recovering/Resolving]
  - Platelet count decreased [Recovering/Resolving]
  - Contusion [Recovering/Resolving]
  - Diarrhoea [Recovering/Resolving]
